FAERS Safety Report 7429985-6 (Version None)
Quarter: 2011Q2

REPORT INFORMATION
  Report Type: 
  Country: None (occurrence: None)
  Receive Date: 20110421
  Receipt Date: 20110415
  Transmission Date: 20111010
  Serious: Yes (Hospitalization, Other)
  Sender: FDA-Public Use
  Company Number: JP-GENZYME-CAMP-1001575

PATIENT
  Sex: Male

DRUGS (2)
  1. CAMPATH [Suspect]
     Indication: CHRONIC LYMPHOCYTIC LEUKAEMIA
     Dosage: 3 MG, UNK
     Route: 065
     Dates: start: 20100607
  2. CAMPATH [Suspect]
     Dosage: 10 MG, UNK
     Route: 065
     Dates: start: 20100608, end: 20100621

REACTIONS (4)
  - EPSTEIN-BARR VIRUS INFECTION [None]
  - LYMPHOMA [None]
  - IMMUNODEFICIENCY [None]
  - ANAEMIA [None]
